FAERS Safety Report 8034067-9 (Version None)
Quarter: 2012Q1

REPORT INFORMATION
  Report Type: 
  Country: None (occurrence: None)
  Receive Date: 20120110
  Receipt Date: 20120102
  Transmission Date: 20120608
  Serious: Yes (Death)
  Sender: FDA-Public Use
  Company Number: US-BAYER-2012-002006

PATIENT
  Age: 44 Year
  Sex: Female

DRUGS (9)
  1. RISPERIDONE [Suspect]
  2. PROPRANOLOL [Suspect]
  3. ETHANOL [Suspect]
  4. QUETIAPINE [Suspect]
  5. DIPHENHYDRAMINE HCL [Suspect]
  6. AMLODIPINE [Suspect]
  7. BUPROPION HYDROCHLORIDE [Suspect]
  8. ACETAMINOPHEN [Suspect]
  9. OPIOIDS [Suspect]

REACTIONS (1)
  - TOXICITY TO VARIOUS AGENTS [None]
